FAERS Safety Report 23841067 (Version 1)
Quarter: 2024Q2

REPORT INFORMATION
  Report Type: Spontaneous
  Country: PT (occurrence: None)
  Receive Date: 20240510
  Receipt Date: 20240510
  Transmission Date: 20240716
  Serious: Yes (Other)
  Sender: FDA-Public Use
  Company Number: PT-ROCHE-2760563

PATIENT
  Age: 62 Year
  Sex: Female

DRUGS (7)
  1. TECENTRIQ [Suspect]
     Active Substance: ATEZOLIZUMAB
     Indication: Transitional cell carcinoma
     Dosage: 21/21 DAYS
     Route: 041
     Dates: start: 20190902
  2. TECENTRIQ [Suspect]
     Active Substance: ATEZOLIZUMAB
     Dosage: 21/21 DAYS
     Route: 041
     Dates: start: 201911
  3. TECENTRIQ [Suspect]
     Active Substance: ATEZOLIZUMAB
     Dosage: 21/21 DAYS
     Route: 041
     Dates: start: 202002
  4. TECENTRIQ [Suspect]
     Active Substance: ATEZOLIZUMAB
     Dosage: 21/21 DAYS
     Route: 041
     Dates: start: 202008
  5. PANTOPRAZOLE [Concomitant]
     Active Substance: PANTOPRAZOLE
  6. SIMVASTATIN [Concomitant]
     Active Substance: SIMVASTATIN
  7. AMLODIPINE [Concomitant]
     Active Substance: AMLODIPINE BESYLATE

REACTIONS (3)
  - Weight decreased [Unknown]
  - Cough [Unknown]
  - Klebsiella urinary tract infection [Unknown]
